FAERS Safety Report 9753175 (Version 1)
Quarter: 2013Q4

REPORT INFORMATION
  Report Type: Spontaneous
  Country: US (occurrence: US)
  Receive Date: 20131213
  Receipt Date: 20131213
  Transmission Date: 20140711
  Serious: No
  Sender: FDA-Public Use
  Company Number: US-GILEAD-2010-0026804

PATIENT
  Sex: Female
  Weight: 76.2 kg

DRUGS (9)
  1. LETAIRIS [Suspect]
     Indication: PULMONARY ARTERIAL HYPERTENSION
     Route: 048
     Dates: start: 20080729
  2. ASPIRIN [Concomitant]
  3. LASIX [Concomitant]
  4. COZAAR [Concomitant]
  5. CLONIDINE [Concomitant]
  6. MELOXICAM [Concomitant]
  7. METFORMIN [Concomitant]
  8. LOVASTATIN [Concomitant]
  9. POTASSIUM CHLORIDE [Concomitant]

REACTIONS (1)
  - Tooth infection [Unknown]
